FAERS Safety Report 12676317 (Version 3)
Quarter: 2016Q4

REPORT INFORMATION
  Report Type: Spontaneous
  Country: US (occurrence: US)
  Receive Date: 20160823
  Receipt Date: 20161012
  Transmission Date: 20170207
  Serious: No
  Sender: FDA-Public Use
  Company Number: US-PFIZER INC-2016394714

PATIENT
  Age: 76 Year
  Sex: Male

DRUGS (1)
  1. XELJANZ [Suspect]
     Active Substance: TOFACITINIB CITRATE
     Dosage: 5 MG

REACTIONS (6)
  - Asthenia [Unknown]
  - Hypertension [Unknown]
  - Muscular weakness [Unknown]
  - Nasopharyngitis [Unknown]
  - Myalgia [Unknown]
  - Hyperglycaemia [Unknown]
